FAERS Safety Report 14316634 (Version 2)
Quarter: 2018Q2

REPORT INFORMATION
  Report Type: Spontaneous
  Country: US (occurrence: US)
  Receive Date: 20171222
  Receipt Date: 20180409
  Transmission Date: 20180711
  Serious: Yes (Other)
  Sender: FDA-Public Use
  Company Number: US-BRISTOL-MYERS SQUIBB COMPANY-BMS-2017-113684

PATIENT
  Age: 60 Year
  Sex: Male

DRUGS (2)
  1. OPDIVO [Suspect]
     Active Substance: NIVOLUMAB
     Indication: PRODUCT USED FOR UNKNOWN INDICATION
     Dosage: FOUR DOSES OF REGIMEN
     Route: 042
  2. YERVOY [Suspect]
     Active Substance: IPILIMUMAB
     Indication: PRODUCT USED FOR UNKNOWN INDICATION
     Dosage: FOUR DOSES OF REGIMEN
     Route: 042

REACTIONS (6)
  - Vasculitis [Unknown]
  - Colitis [Unknown]
  - Splenic thrombosis [Unknown]
  - Myelitis [Unknown]
  - Pneumonitis [Unknown]
  - Fatigue [Unknown]
